FAERS Safety Report 18498281 (Version 2)
Quarter: 2020Q4

REPORT INFORMATION
  Report Type: Report from Study
  Country: AR (occurrence: AR)
  Receive Date: 20201112
  Receipt Date: 20201205
  Transmission Date: 20210114
  Serious: Yes (Other)
  Sender: FDA-Public Use
  Company Number: AR-TAKEDA-2020TUS048305

PATIENT
  Age: 31 Year
  Sex: Female

DRUGS (1)
  1. VELAGLUCERASE ALFA [Suspect]
     Active Substance: VELAGLUCERASE ALFA
     Indication: GAUCHER^S DISEASE
     Dosage: 400 INTERNATIONAL UNIT, Q2WEEKS
     Route: 042

REACTIONS (6)
  - Eye laser surgery [Unknown]
  - Intraocular pressure increased [Unknown]
  - Inflammation [Unknown]
  - Glaucoma [Unknown]
  - Macular oedema [Unknown]
  - Eye inflammation [Unknown]

NARRATIVE: CASE EVENT DATE: 20201026
